FAERS Safety Report 8079659-6 (Version None)
Quarter: 2012Q1

REPORT INFORMATION
  Report Type: 
  Country: None (occurrence: None)
  Receive Date: 20120128
  Receipt Date: 20110810
  Transmission Date: 20120608
  Serious: No
  Sender: FDA-Public Use
  Company Number: US-ABBOTT-11P-163-0845652-00

PATIENT
  Sex: Female
  Weight: 68.554 kg

DRUGS (4)
  1. IMURAN [Concomitant]
     Indication: POLYCHONDRITIS
     Dates: start: 20090101
  2. METHOTREXATE [Concomitant]
     Indication: POLYCHONDRITIS
  3. HUMIRA [Suspect]
     Indication: POLYCHONDRITIS
     Dates: start: 20110501
  4. PREDNISONE TAB [Concomitant]
     Indication: POLYCHONDRITIS
     Dosage: TAPERING DOSES

REACTIONS (6)
  - EAR CANAL ERYTHEMA [None]
  - INJECTION SITE PAIN [None]
  - ARTHRALGIA [None]
  - PAIN IN EXTREMITY [None]
  - MOTION SICKNESS [None]
  - EAR DISCOMFORT [None]
